FAERS Safety Report 8596640-9 (Version None)
Quarter: 2012Q3

REPORT INFORMATION
  Report Type: 
  Country: None (occurrence: None)
  Receive Date: 20120815
  Receipt Date: 20120806
  Transmission Date: 20120928
  Serious: Yes (Other)
  Sender: FDA-Public Use
  Company Number: US-ASTRAZENECA-2012SE55301

PATIENT
  Age: 49 Year
  Sex: Female
  Weight: 58.1 kg

DRUGS (2)
  1. NEXIUM [Suspect]
     Indication: ABDOMINAL PAIN UPPER
     Route: 048
     Dates: start: 20110901
  2. PREDNISONE TAB [Concomitant]

REACTIONS (4)
  - HAEMATEMESIS [None]
  - OFF LABEL USE [None]
  - EOSINOPHILIA [None]
  - FOOD ALLERGY [None]
